FAERS Safety Report 5882232-9 (Version None)
Quarter: 2008Q3

REPORT INFORMATION
  Report Type: 
  Country: None (occurrence: None)
  Receive Date: 20080912
  Receipt Date: 20080728
  Transmission Date: 20090109
  Serious: No
  Sender: FDA-Public Use
  Company Number: US-ABBOTT-08P-163-0466417-00

PATIENT
  Sex: Female
  Weight: 99.88 kg

DRUGS (1)
  1. HUMIRA [Suspect]
     Indication: RHEUMATOID ARTHRITIS
     Route: 058
     Dates: start: 20071001

REACTIONS (3)
  - INJECTION SITE HAEMATOMA [None]
  - INJECTION SITE MASS [None]
  - INJECTION SITE PRURITUS [None]
